FAERS Safety Report 6046892-4 (Version None)
Quarter: 2009Q1

REPORT INFORMATION
  Report Type: 
  Country: None (occurrence: None)
  Receive Date: 20090122
  Receipt Date: 20090113
  Transmission Date: 20090719
  Serious: Yes (Other)
  Sender: FDA-Public Use
  Company Number: B0554551A

PATIENT
  Age: 14 Year
  Sex: Female

DRUGS (2)
  1. ALBUTEROL SULFATE [Suspect]
     Route: 055
  2. FUROSEMID [Concomitant]

REACTIONS (1)
  - LACTIC ACIDOSIS [None]
